FAERS Safety Report 16858071 (Version 1)
Quarter: 2019Q3

REPORT INFORMATION
  Report Type: Spontaneous
  Country: US (occurrence: US)
  Receive Date: 20190926
  Receipt Date: 20190926
  Transmission Date: 20191005
  Serious: Yes (Hospitalization, Other)
  Sender: FDA-Public Use
  Company Number: US-GLAXOSMITHKLINE-US2019170976

PATIENT
  Sex: Female

DRUGS (1)
  1. TRELEGY ELLIPTA [Suspect]
     Active Substance: FLUTICASONE FUROATE\UMECLIDINIUM BROMIDE\VILANTEROL TRIFENATATE
     Indication: WHEEZING
     Dosage: 1 PUFF(S), QD
     Route: 055

REACTIONS (5)
  - Diverticulitis [Unknown]
  - Bladder operation [Unknown]
  - Cystitis [Unknown]
  - Product use in unapproved indication [Unknown]
  - Cerebrovascular accident [Unknown]
